FAERS Safety Report 12180307 (Version 1)
Quarter: 2016Q1

REPORT INFORMATION
  Report Type: Spontaneous
  Country: US (occurrence: None)
  Receive Date: 20160314
  Receipt Date: 20160314
  Transmission Date: 20160526
  Serious: Yes (Disabling)
  Sender: FDA-Public Use
  Company Number: None

PATIENT
  Age: 4 Year
  Sex: Male
  Weight: 20.41 kg

DRUGS (1)
  1. MIRALAX [Suspect]
     Active Substance: POLYETHYLENE GLYCOL 3350
     Indication: CONSTIPATION
     Dosage: 1 CAPFUL TWICE DAILY TWICE DAILY TAKEN BY MOUTH
     Route: 048
     Dates: start: 20130313

REACTIONS (3)
  - Condition aggravated [None]
  - Drug ineffective [None]
  - Unevaluable event [None]

NARRATIVE: CASE EVENT DATE: 20150812
